FAERS Safety Report 10460569 (Version 1)
Quarter: 2014Q3

REPORT INFORMATION
  Report Type: Report from Study
  Country: BR (occurrence: BR)
  Receive Date: 20140918
  Receipt Date: 20140918
  Transmission Date: 20150326
  Serious: Yes (Death, Other)
  Sender: FDA-Public Use
  Company Number: BR-ROCHE-1459685

PATIENT

DRUGS (2)
  1. RIBAVIRIN. [Suspect]
     Active Substance: RIBAVIRIN
     Indication: CHRONIC HEPATITIS C
     Route: 065
  2. PEGINTERFERON ALFA-2A [Suspect]
     Active Substance: PEGINTERFERON ALFA-2A
     Indication: CHRONIC HEPATITIS C
     Route: 065

REACTIONS (19)
  - Renal failure [Unknown]
  - Anaemia [Unknown]
  - Mental disorder [Unknown]
  - Deep vein thrombosis [Unknown]
  - Thyroid disorder [Unknown]
  - Thrombocytopenia [Unknown]
  - Medication error [Unknown]
  - No therapeutic response [Unknown]
  - Neoplasm [Unknown]
  - Weight decreased [Unknown]
  - Opportunistic infection [Unknown]
  - Death [Fatal]
  - Hepatic failure [Unknown]
  - Myalgia [Unknown]
  - CD4 lymphocytes decreased [Unknown]
  - Skin disorder [Unknown]
  - Drug intolerance [Unknown]
  - Neutropenia [Unknown]
  - Pancreatitis [Unknown]
